FAERS Safety Report 20428723 (Version 1)
Quarter: 2022Q1

REPORT INFORMATION
  Report Type: Report from Study
  Country: US (occurrence: US)
  Receive Date: 20220204
  Receipt Date: 20220204
  Transmission Date: 20220423
  Serious: Yes (Death, Hospitalization, Other)
  Sender: FDA-Public Use
  Company Number: US-BRISTOL-MYERS SQUIBB COMPANY-BMS-2020-078284

PATIENT
  Age: 76 Year
  Sex: Female
  Weight: 76.644 kg

DRUGS (4)
  1. NIVOLUMAB [Suspect]
     Active Substance: NIVOLUMAB
     Indication: Gastric cancer
     Dosage: 240 MILLIGRAM, Q2WK
     Route: 042
     Dates: start: 20200914
  2. OXALIPLATIN [Suspect]
     Active Substance: OXALIPLATIN
     Indication: Gastric cancer
     Dosage: 400 MILLIGRAM/SQ. METER, Q2WK
     Route: 042
     Dates: start: 20200914, end: 20200914
  3. LEUCOVORIN CALCIUM [Suspect]
     Active Substance: LEUCOVORIN CALCIUM
     Indication: Gastric cancer
     Dosage: 85 MILLIGRAM/SQ. METER, Q2WK
     Route: 042
     Dates: start: 20200914, end: 20200914
  4. FLUOROURACIL [Suspect]
     Active Substance: FLUOROURACIL
     Indication: Gastric cancer
     Dosage: 2400 MILLIGRAM/SQ. METER, Q2WK
     Route: 042
     Dates: start: 20200914, end: 20200914

REACTIONS (4)
  - Death [Fatal]
  - Nausea [Unknown]
  - Pulmonary embolism [Unknown]
  - Ascites [Unknown]

NARRATIVE: CASE EVENT DATE: 20200921
